APPROVED DRUG PRODUCT: DOXY 200
Active Ingredient: DOXYCYCLINE HYCLATE
Strength: EQ 200MG BASE/VIAL
Dosage Form/Route: INJECTABLE;INJECTION
Application: A062475 | Product #002 | TE Code: AP
Applicant: FRESENIUS KABI USA LLC
Approved: Dec 9, 1983 | RLD: No | RS: Yes | Type: RX